FAERS Safety Report 9517273 (Version 1)
Quarter: 2013Q1

REPORT INFORMATION
  Report Type: Spontaneous
  Country: US (occurrence: None)
  Receive Date: 20130305
  Receipt Date: 20130305
  Transmission Date: 20140127
  Serious: Yes (Other)
  Sender: FDA-Public Use
  Company Number: 163-21880-12022861

PATIENT
  Age: 76 Year
  Sex: Male

DRUGS (17)
  1. REVLIMID [Suspect]
     Indication: PLASMA CELL MYELOMA
     Dosage: 21 IN 21 D
     Route: 048
     Dates: start: 20120105
  2. LASIX (FUROSEMIDE) [Concomitant]
  3. PROCRIT [Concomitant]
  4. HUMALOG (INSULIN LISPRO) [Concomitant]
  5. CELEBREX (CELECOXIB) [Concomitant]
  6. DIOVAN (VALSARTAN) [Concomitant]
  7. ZOMETA (ZOLEDRONIC ACID) [Concomitant]
  8. LANTUS (INSULIN GLARGINE) [Concomitant]
  9. CLONAZEPAM (CLONAZEPAM) [Concomitant]
  10. GABAPENTIN (GABAPENTIN) [Concomitant]
  11. METOCLOPRAMIDE (METOCLOPRAMIDE) [Concomitant]
  12. FLUOXETINE (FLUOXETINE) [Concomitant]
  13. LEVOFLOXACIN (LEVOFLOXACIN) [Concomitant]
  14. ALPRAZOLAM (ALPRAZOLAM) [Concomitant]
  15. KLOR-CON (POTASSIUM CHLORIDE) [Concomitant]
  16. OMEPRAZOLE (OMEPRAZOLE) [Concomitant]
  17. HYDROCODONE-ACETAMINOPHEN (VICODIN) [Concomitant]

REACTIONS (6)
  - Fatigue [None]
  - Diarrhoea [None]
  - Oedema peripheral [None]
  - Weight increased [None]
  - Platelet count decreased [None]
  - White blood cell count decreased [None]
